FAERS Safety Report 6733884-2 (Version None)
Quarter: 2010Q2

REPORT INFORMATION
  Report Type: 
  Country: None (occurrence: None)
  Receive Date: 20100520
  Receipt Date: 20100512
  Transmission Date: 20101027
  Serious: Yes (Other)
  Sender: FDA-Public Use
  Company Number: CN-ROCHE-702418

PATIENT
  Age: 55 Year
  Sex: Female
  Weight: 49 kg

DRUGS (1)
  1. HERCEPTIN [Suspect]
     Indication: BREAST CANCER
     Dosage: DOSAGE WAS REPORTED AS 293 MG PER THREE WEEKS.
     Route: 041
     Dates: start: 20080301, end: 20080901

REACTIONS (3)
  - BLOOD PRESSURE INCREASED [None]
  - EJECTION FRACTION DECREASED [None]
  - METASTASES TO BREAST [None]
